FAERS Safety Report 5270754-3 (Version None)
Quarter: 2007Q1

REPORT INFORMATION
  Report Type: 
  Country: None (occurrence: None)
  Receive Date: 20070319
  Receipt Date: 20070319
  Transmission Date: 20070707
  Serious: Yes (Other)
  Sender: FDA-Public Use
  Company Number: None

PATIENT
  Age: 32 Year
  Sex: Female
  Weight: 63.5036 kg

DRUGS (1)
  1. DROPERIDOL [Suspect]
     Indication: LABYRINTHITIS
     Dosage: 1/2 CC  X1  IM   ONLY (ONE TIME)
     Route: 030
     Dates: start: 20050101

REACTIONS (8)
  - AKATHISIA [None]
  - AUTONOMIC NERVOUS SYSTEM IMBALANCE [None]
  - CONTRAINDICATION TO MEDICAL TREATMENT [None]
  - DISSOCIATION [None]
  - DYSTONIA [None]
  - MUSCLE RIGIDITY [None]
  - NEUROLEPTIC MALIGNANT SYNDROME [None]
  - SEDATION [None]
